FAERS Safety Report 4325838-0 (Version None)
Quarter: 2004Q1

REPORT INFORMATION
  Report Type: 
  Country: None (occurrence: None)
  Receive Date: 20040329
  Receipt Date: 20040318
  Transmission Date: 20041129
  Serious: Yes (Disabling)
  Sender: FDA-Public Use
  Company Number: US-ROCHE-362283

PATIENT
  Age: 45 Year
  Sex: Male
  Weight: 90.7 kg

DRUGS (7)
  1. PEGASYS [Suspect]
     Indication: HEPATITIS C
     Route: 058
     Dates: start: 20040213
  2. COPEGUS [Suspect]
     Indication: HEPATITIS C
     Route: 048
     Dates: start: 20040213
  3. LEXAPRO [Concomitant]
     Indication: DEPRESSION
     Route: 048
  4. WELLBUTRIN [Concomitant]
     Route: 048
  5. NAPROSYN [Concomitant]
     Indication: BACK PAIN
     Route: 048
  6. ASPIRIN [Concomitant]
     Route: 048
  7. CELEBREX [Concomitant]
     Route: 048

REACTIONS (10)
  - AMNESIA [None]
  - ASTHENIA [None]
  - DEPRESSION [None]
  - DIARRHOEA [None]
  - FALL [None]
  - FATIGUE [None]
  - INSOMNIA [None]
  - IRRITABILITY [None]
  - SLEEP APNOEA SYNDROME [None]
  - SNORING [None]
